FAERS Safety Report 15346600 (Version 2)
Quarter: 2018Q4

REPORT INFORMATION
  Report Type: Report from Study
  Country: US (occurrence: US)
  Receive Date: 20180904
  Receipt Date: 20181106
  Transmission Date: 20190204
  Serious: No
  Sender: FDA-Public Use
  Company Number: PHEH2018US035911

PATIENT
  Sex: Female

DRUGS (1)
  1. COSENTYX [Suspect]
     Active Substance: SECUKINUMAB
     Indication: PSORIASIS
     Dosage: 300 MG, QMO
     Route: 058

REACTIONS (9)
  - Skin discolouration [Unknown]
  - Cough [Unknown]
  - Malaise [Unknown]
  - Bronchitis [Unknown]
  - Sinusitis [Unknown]
  - Psoriasis [Unknown]
  - Sneezing [Unknown]
  - Ill-defined disorder [Unknown]
  - Nasal congestion [Unknown]
